FAERS Safety Report 11339927 (Version 1)
Quarter: 2015Q3

REPORT INFORMATION
  Report Type: Spontaneous
  Country: US (occurrence: None)
  Receive Date: 20150804
  Receipt Date: 20150804
  Transmission Date: 20151125
  Serious: Yes (Other)
  Sender: FDA-Public Use
  Company Number: None

PATIENT
  Age: 75 Year
  Sex: Female
  Weight: 72.58 kg

DRUGS (1)
  1. DOCUSATE SODIUM AND SENNOSIDES [Suspect]
     Active Substance: DOCUSATE SODIUM\SENNOSIDES
     Indication: CONSTIPATION

REACTIONS (6)
  - Chest pain [None]
  - Abdominal pain upper [None]
  - Abdominal distension [None]
  - Abdominal pain [None]
  - Vomiting [None]
  - Chest discomfort [None]

NARRATIVE: CASE EVENT DATE: 20150801
